FAERS Safety Report 4615769-0 (Version None)
Quarter: 2005Q2

REPORT INFORMATION
  Report Type: 
  Country: None (occurrence: None)
  Receive Date: 20050310
  Receipt Date: 20050105
  Transmission Date: 20051028
  Serious: Yes (Other)
  Sender: FDA-Public Use
  Company Number: A03200500037

PATIENT
  Age: 72 Year
  Sex: Female
  Weight: 62.5964 kg

DRUGS (1)
  1. ELOXATIN [Suspect]
     Indication: COLON CANCER
     Dosage: 70 ML OTHER - INTRAVENOUS NOS
     Route: 042
     Dates: start: 20041216, end: 20041216

REACTIONS (3)
  - FLUSHING [None]
  - SWELLING FACE [None]
  - SWOLLEN TONGUE [None]
